FAERS Safety Report 15877117 (Version 1)
Quarter: 2019Q1

REPORT INFORMATION
  Report Type: Report from Study
  Country: CN (occurrence: CN)
  Receive Date: 20190128
  Receipt Date: 20190128
  Transmission Date: 20190417
  Serious: Yes (Hospitalization)
  Sender: FDA-Public Use
  Company Number: CN-SA-2018SA226682

PATIENT
  Age: 61 Year
  Sex: Male
  Weight: 71.2 kg

DRUGS (8)
  1. SEVELAMER CARBONATE. [Suspect]
     Active Substance: SEVELAMER CARBONATE
     Dosage: INTENDED DOSE 4 TABLET, ACTUAL DOSE 0 TABLET
     Route: 048
     Dates: start: 20180814, end: 20180814
  2. SEVELAMER CARBONATE. [Suspect]
     Active Substance: SEVELAMER CARBONATE
     Dosage: INTENDED DOSE 3 TABLET, ACTUAL DOSE 9 TABLET
     Route: 048
     Dates: start: 20180811, end: 20180813
  3. FELODIPINE. [Concomitant]
     Active Substance: FELODIPINE
     Indication: HYPERTENSION
     Dosage: 5 MG, QD
     Route: 048
     Dates: start: 20180515
  4. SEVELAMER CARBONATE. [Suspect]
     Active Substance: SEVELAMER CARBONATE
     Indication: HYPERPHOSPHATAEMIA
     Dosage: UNK
     Route: 048
     Dates: start: 20180726
  5. NIFEDIPINE. [Concomitant]
     Active Substance: NIFEDIPINE
     Indication: HYPERTENSION
     Dosage: 30 MG, QD
     Route: 048
     Dates: start: 2012
  6. SEVELAMER CARBONATE. [Suspect]
     Active Substance: SEVELAMER CARBONATE
     Dosage: INTENDED DOSE 3 TABLET, ACTUAL DOSE 2 TABLET
     Route: 048
     Dates: start: 20180810, end: 20180810
  7. KETOSTERIL [Concomitant]
     Active Substance: AMINO ACIDS
     Indication: CHRONIC KIDNEY DISEASE
     Dosage: 4 OTHER, TID
     Route: 048
     Dates: start: 20171108
  8. VITAMIN D [ERGOCALCIFEROL] [Concomitant]
     Active Substance: ERGOCALCIFEROL
     Dosage: 400 U, QD
     Route: 048
     Dates: start: 20180726, end: 20180813

REACTIONS (1)
  - Chronic kidney disease [Recovering/Resolving]

NARRATIVE: CASE EVENT DATE: 20180814
